FAERS Safety Report 23044976 (Version 3)
Quarter: 2024Q1

REPORT INFORMATION
  Report Type: Spontaneous
  Country: CA (occurrence: CA)
  Receive Date: 20231009
  Receipt Date: 20240327
  Transmission Date: 20240410
  Serious: Yes (Hospitalization, Other)
  Sender: FDA-Public Use
  Company Number: CA-BRACCO-2023CA05163

PATIENT
  Age: 71 Year
  Sex: Female

DRUGS (3)
  1. SULFUR HEXAFLUORIDE [Suspect]
     Active Substance: SULFUR HEXAFLUORIDE
     Indication: Echocardiogram
     Dosage: 0.75 ML, SINGLE
     Route: 042
     Dates: start: 20231004, end: 20231004
  2. SULFUR HEXAFLUORIDE [Suspect]
     Active Substance: SULFUR HEXAFLUORIDE
     Indication: Echocardiogram
     Dosage: 0.75 ML, SINGLE
     Route: 042
     Dates: start: 20231004, end: 20231004
  3. SULFUR HEXAFLUORIDE [Suspect]
     Active Substance: SULFUR HEXAFLUORIDE
     Indication: Echocardiogram
     Dosage: 0.75 ML, SINGLE
     Route: 042
     Dates: start: 20231004, end: 20231004

REACTIONS (5)
  - Acute pulmonary oedema [Recovered/Resolved]
  - Cough [Unknown]
  - Dyspnoea [Unknown]
  - Respiratory distress [Unknown]
  - Wheezing [Unknown]

NARRATIVE: CASE EVENT DATE: 20231004
